FAERS Safety Report 5623056-7 (Version None)
Quarter: 2008Q1

REPORT INFORMATION
  Report Type: 
  Country: None (occurrence: None)
  Receive Date: 20080212
  Receipt Date: 20080129
  Transmission Date: 20080703
  Serious: Yes (Hospitalization, Other)
  Sender: FDA-Public Use
  Company Number: US-AMGEN-QUU262962

PATIENT
  Sex: Female

DRUGS (1)
  1. KINERET [Suspect]
     Indication: DRUG USE FOR UNKNOWN INDICATION
     Route: 058
     Dates: start: 20070901

REACTIONS (4)
  - DYSPNOEA [None]
  - ERYTHEMA [None]
  - OEDEMA PERIPHERAL [None]
  - TENDERNESS [None]
